FAERS Safety Report 4994354-5 (Version None)
Quarter: 2006Q2

REPORT INFORMATION
  Report Type: 
  Country: None (occurrence: None)
  Receive Date: 20060503
  Receipt Date: 20060427
  Transmission Date: 20061013
  Serious: Yes (Death, Hospitalization)
  Sender: FDA-Public Use
  Company Number: 2005JP001614

PATIENT
  Age: 71 Year
  Sex: Female
  Weight: 38 kg

DRUGS (11)
  1. PROGRAF [Suspect]
     Indication: RHEUMATOID ARTHRITIS
     Dosage: SEE IMAGE, ORAL
     Route: 048
     Dates: start: 20050517, end: 20050718
  2. PROGRAF [Suspect]
     Indication: RHEUMATOID ARTHRITIS
     Dosage: SEE IMAGE, ORAL
     Route: 048
     Dates: start: 20050719, end: 20050809
  3. FOLIAMIN (FOLIC ACID) TABLET [Concomitant]
  4. MICARDIS [Concomitant]
  5. SELBEX (TEPRENONE) POWDER [Concomitant]
  6. ONE-ALPHA (ALFACALCIDOL) TABLET [Concomitant]
  7. KAMAG G (MAGNESIUM OXIDE) POWDER [Concomitant]
  8. VOLTAREN [Concomitant]
  9. ASPARA-CA (ASPARTATE CALCIUM) TABLET [Concomitant]
  10. PREDNISOLONE [Concomitant]
  11. DIDRONEL [Concomitant]

REACTIONS (12)
  - ALOPECIA [None]
  - ANOREXIA [None]
  - CYTOMEGALOVIRUS INFECTION [None]
  - DIFFUSE ALVEOLAR DAMAGE [None]
  - HEAT STROKE [None]
  - IMMUNOSUPPRESSANT DRUG LEVEL DECREASED [None]
  - INTERSTITIAL LUNG DISEASE [None]
  - LUNG DISORDER [None]
  - LYMPHOCYTE COUNT DECREASED [None]
  - PNEUMOCYSTIS JIROVECI PNEUMONIA [None]
  - STAPHYLOCOCCAL INFECTION [None]
  - THERAPY NON-RESPONDER [None]
